FAERS Safety Report 4294557-1 (Version None)
Quarter: 2004Q1

REPORT INFORMATION
  Report Type: 
  Country: None (occurrence: None)
  Receive Date: 20040213
  Receipt Date: 20040205
  Transmission Date: 20041129
  Serious: Yes (Disabling, Other)
  Sender: FDA-Public Use
  Company Number: WAES 0402AUS00030

PATIENT
  Age: 41 Year
  Sex: Male
  Weight: 65 kg

DRUGS (5)
  1. FOSAMAX [Suspect]
     Indication: OSTEOPOROSIS
     Route: 048
     Dates: start: 20030301
  2. BACLOFEN [Concomitant]
     Indication: MUSCLE SPASMS
     Dates: start: 19770101
  3. DIAZEPAM [Concomitant]
     Dates: start: 19960101
  4. OXYBUTYNIN CHLORIDE [Concomitant]
     Indication: BLADDER SPASM
     Dates: start: 19950101
  5. SENNA [Concomitant]
     Indication: CONSTIPATION
     Route: 048
     Dates: start: 19920101

REACTIONS (2)
  - CATHETER RELATED COMPLICATION [None]
  - URETHRAL STRICTURE [None]
